FAERS Safety Report 11080978 (Version 1)
Quarter: 2015Q2

REPORT INFORMATION
  Report Type: Spontaneous
  Country: US (occurrence: None)
  Receive Date: 20150430
  Receipt Date: 20150430
  Transmission Date: 20150821
  Serious: Yes (Other)
  Sender: FDA-Public Use
  Company Number: None

PATIENT
  Age: 52 Year
  Sex: Male
  Weight: 79.38 kg

DRUGS (5)
  1. CARBIDOPA/LEVODPA [Concomitant]
  2. BROMOCRIPTINE [Concomitant]
     Active Substance: BROMOCRIPTINE
  3. LETROZOLE. [Concomitant]
     Active Substance: LETROZOLE
  4. MIRAPEX ER [Concomitant]
     Active Substance: PRAMIPEXOLE DIHYDROCHLORIDE
  5. RABEPRAZOLE [Suspect]
     Active Substance: RABEPRAZOLE
     Indication: GASTROOESOPHAGEAL REFLUX DISEASE
     Dosage: 1 PER DAY/30 PILLS
     Route: 048
     Dates: start: 20150415, end: 20150429

REACTIONS (4)
  - Oesophageal pain [None]
  - Product quality issue [None]
  - Drug effect decreased [None]
  - Product substitution issue [None]

NARRATIVE: CASE EVENT DATE: 20150429
